FAERS Safety Report 20974436 (Version 1)
Quarter: 2022Q2

REPORT INFORMATION
  Report Type: Spontaneous
  Country: US (occurrence: None)
  Receive Date: 20220616
  Receipt Date: 20220616
  Transmission Date: 20220721
  Serious: No
  Sender: FDA-Public Use
  Company Number: None

PATIENT
  Age: 48 Year
  Sex: Male
  Weight: 85.95 kg

DRUGS (2)
  1. PAXLOVID [Suspect]
     Active Substance: NIRMATRELVIR\RITONAVIR
     Indication: COVID-19
     Dates: start: 20220607, end: 20220611
  2. VITAMINS [Concomitant]
     Active Substance: VITAMINS

REACTIONS (2)
  - SARS-CoV-2 test positive [None]
  - Nasopharyngitis [None]

NARRATIVE: CASE EVENT DATE: 20220615
